FAERS Safety Report 6543137-3 (Version None)
Quarter: 2010Q1

REPORT INFORMATION
  Report Type: 
  Country: None (occurrence: None)
  Receive Date: 20100120
  Receipt Date: 20100112
  Transmission Date: 20100710
  Serious: Yes (Hospitalization)
  Sender: FDA-Public Use
  Company Number: GB-AMGEN-QUU385199

PATIENT
  Age: 62 Year
  Sex: Male
  Weight: 102 kg

DRUGS (7)
  1. NEUPOGEN [Suspect]
     Indication: PERIPHERAL BLOOD STEM CELL APHERESIS
     Route: 058
     Dates: start: 20091218, end: 20091223
  2. PLERIXAFOR [Suspect]
     Route: 058
     Dates: start: 20091221, end: 20091222
  3. ATENOLOL [Concomitant]
  4. BENDROFLUMETHIAZIDE [Concomitant]
  5. LISINOPRIL [Concomitant]
  6. OXYCONTIN [Concomitant]
  7. OXYNORM [Concomitant]

REACTIONS (1)
  - MYOCARDIAL INFARCTION [None]
